FAERS Safety Report 14026977 (Version 1)
Quarter: 2017Q3

REPORT INFORMATION
  Report Type: Spontaneous
  Country: US (occurrence: US)
  Receive Date: 20170929
  Receipt Date: 20170929
  Transmission Date: 20171128
  Serious: No
  Sender: FDA-Public Use
  Company Number: US-SUNOVION-2017SUN004153

PATIENT

DRUGS (1)
  1. LATUDA [Suspect]
     Active Substance: LURASIDONE HYDROCHLORIDE
     Indication: AFFECTIVE DISORDER
     Dosage: 20 MG, UNK
     Route: 048

REACTIONS (2)
  - Nausea [Unknown]
  - Off label use [Unknown]
